FAERS Safety Report 6022059-0 (Version None)
Quarter: 2008Q4

REPORT INFORMATION
  Report Type: 
  Country: None (occurrence: None)
  Receive Date: 20081229
  Receipt Date: 20081218
  Transmission Date: 20090506
  Serious: Yes (Other)
  Sender: FDA-Public Use
  Company Number: US-BAXTER-2008BH013700

PATIENT
  Age: 48 Year
  Sex: Female
  Weight: 88 kg

DRUGS (20)
  1. GAMMAGARD LIQUID [Suspect]
     Indication: MULTIPLE SCLEROSIS
  2. GAMMAGARD LIQUID [Suspect]
     Indication: OFF LABEL USE
  3. GAMMAGARD LIQUID [Suspect]
  4. GAMMAGARD LIQUID [Suspect]
  5. GAMMAGARD LIQUID [Suspect]
  6. GAMMAGARD LIQUID [Suspect]
  7. GAMMAGARD LIQUID [Suspect]
     Route: 042
     Dates: start: 20081111, end: 20081125
  8. GAMMAGARD LIQUID [Suspect]
     Route: 042
     Dates: start: 20081111, end: 20081125
  9. FLOMAX [Concomitant]
     Indication: URINARY TRACT DISORDER
     Route: 048
     Dates: start: 20061001
  10. PROVIGIL [Concomitant]
     Indication: SLEEP DISORDER
     Route: 048
     Dates: start: 20061001
  11. MULTI-VITAMINS [Concomitant]
     Indication: DRUG USE FOR UNKNOWN INDICATION
     Route: 048
     Dates: start: 20080901
  12. SOLU-MEDROL [Concomitant]
     Indication: DRUG USE FOR UNKNOWN INDICATION
     Route: 042
     Dates: start: 20070130
  13. BENADRYL ^WARNER-LAMBERT^               /USA/ [Concomitant]
     Indication: DRUG USE FOR UNKNOWN INDICATION
     Route: 048
     Dates: start: 20061001
  14. MAGNESIUM SULFATE [Concomitant]
     Indication: MUSCLE SPASMS
     Route: 048
     Dates: start: 20070801
  15. POTASSIUM CHLORIDE [Concomitant]
     Indication: MUSCLE SPASMS
     Route: 048
     Dates: start: 20070801
  16. KEPPRA [Concomitant]
     Indication: DRUG USE FOR UNKNOWN INDICATION
     Route: 048
     Dates: start: 20070711
  17. TOPROL-XL [Concomitant]
     Indication: DRUG USE FOR UNKNOWN INDICATION
     Route: 048
     Dates: start: 20070601
  18. DALADAL [Concomitant]
     Indication: DRUG USE FOR UNKNOWN INDICATION
     Route: 042
     Dates: start: 20061001
  19. SODIUM CHLORIDE 0.9% [Concomitant]
     Indication: DRUG USE FOR UNKNOWN INDICATION
     Route: 042
     Dates: start: 20061001
  20. SODIUM CHLORIDE [Concomitant]
     Indication: DRUG USE FOR UNKNOWN INDICATION
     Route: 042
     Dates: start: 20061001

REACTIONS (1)
  - HEPATITIS C [None]
